FAERS Safety Report 4810013-3 (Version None)
Quarter: 2005Q4

REPORT INFORMATION
  Report Type: 
  Country: None (occurrence: None)
  Receive Date: 20051024
  Receipt Date: 20051012
  Transmission Date: 20060501
  Serious: Yes (Hospitalization)
  Sender: FDA-Public Use
  Company Number: 032-24

PATIENT
  Age: 79 Year
  Sex: Female

DRUGS (5)
  1. TEVETEN [Suspect]
     Indication: HYPERTENSION
     Dosage: 600 MG PO
     Route: 048
  2. DICLOFENAC [Suspect]
     Indication: MUSCULOSKELETAL PAIN
  3. LEVOTHYROXINE [Concomitant]
  4. AMLODIPINE [Concomitant]
  5. INDAPAMIDE [Concomitant]

REACTIONS (2)
  - BRONCHITIS ACUTE [None]
  - HYPERTENSION [None]
